FAERS Safety Report 23778339 (Version 1)
Quarter: 2024Q2

REPORT INFORMATION
  Report Type: Spontaneous
  Country: US (occurrence: None)
  Receive Date: 20240424
  Receipt Date: 20240424
  Transmission Date: 20240716
  Serious: No
  Sender: FDA-Public Use
  Company Number: None

PATIENT
  Sex: Female

DRUGS (1)
  1. GADAVIST [Suspect]
     Active Substance: GADOBUTROL
     Indication: Magnetic resonance imaging
     Dates: start: 20240302, end: 20240302

REACTIONS (6)
  - Dysgeusia [None]
  - Parosmia [None]
  - Pruritus [None]
  - Muscle twitching [None]
  - Arthralgia [None]
  - Pain in extremity [None]
